FAERS Safety Report 17102528 (Version 3)
Quarter: 2020Q4

REPORT INFORMATION
  Report Type: Spontaneous
  Country: US (occurrence: US)
  Receive Date: 20191202
  Receipt Date: 20201125
  Transmission Date: 20210113
  Serious: Yes (Death, Other)
  Sender: FDA-Public Use
  Company Number: US-SA-2019SA330110

PATIENT

DRUGS (1)
  1. ZANTAC [Suspect]
     Active Substance: RANITIDINE HYDROCHLORIDE
     Dosage: UNK (3-4 PER DAY)
     Route: 048
     Dates: start: 198801, end: 200501

REACTIONS (6)
  - Impaired quality of life [Unknown]
  - Nasopharyngeal cancer [Unknown]
  - Pain [Unknown]
  - Anxiety [Unknown]
  - Oesophageal cancer metastatic [Fatal]
  - Oesophageal carcinoma [Unknown]

NARRATIVE: CASE EVENT DATE: 20041014
